FAERS Safety Report 4955982-6 (Version None)
Quarter: 2006Q1

REPORT INFORMATION
  Report Type: 
  Country: None (occurrence: None)
  Receive Date: 20060328
  Receipt Date: 20051006
  Transmission Date: 20060701
  Serious: Yes (Hospitalization)
  Sender: FDA-Public Use
  Company Number: US-MERCK-0510USA06390

PATIENT
  Age: 48 Year
  Sex: Male
  Weight: 89 kg

DRUGS (2)
  1. VIOXX [Suspect]
     Indication: PAIN
     Route: 048
     Dates: start: 19990101, end: 20040101
  2. VIOXX [Suspect]
     Indication: INFLAMMATION
     Route: 048
     Dates: start: 19990101, end: 20040101

REACTIONS (11)
  - ANGINA PECTORIS [None]
  - BONE PAIN [None]
  - CARDIAC DISORDER [None]
  - CHEST PAIN [None]
  - HALLUCINATION [None]
  - HEADACHE [None]
  - HYPOAESTHESIA [None]
  - NEPHROLITHIASIS [None]
  - PRESCRIBED OVERDOSE [None]
  - RENAL DISORDER [None]
  - VISUAL ACUITY REDUCED [None]
